FAERS Safety Report 9440961 (Version 1)
Quarter: 2013Q3

REPORT INFORMATION
  Report Type: Spontaneous
  Country: US (occurrence: US)
  Receive Date: 20130805
  Receipt Date: 20130805
  Transmission Date: 20140515
  Serious: No
  Sender: FDA-Public Use
  Company Number: US-BAYER-2013-094500

PATIENT
  Age: 75 Year
  Sex: Female
  Weight: 42.63 kg

DRUGS (8)
  1. ALEVE CAPLET [Suspect]
     Indication: ARTHRITIS
     Dosage: 2 DF, OM
     Route: 048
     Dates: start: 2010
  2. CLOPIDOGREL [Concomitant]
  3. MONTELUKAST [Concomitant]
  4. FUROSEMIDE [Concomitant]
  5. SPIRONOLACTONE [Concomitant]
  6. CARVEDILOL [Concomitant]
  7. SIMVASTATIN [Concomitant]
  8. LISINOPRIL [Concomitant]

REACTIONS (1)
  - Incorrect drug administration duration [None]
